FAERS Safety Report 19552642 (Version 1)
Quarter: 2021Q3

REPORT INFORMATION
  Report Type: Spontaneous
  Country: US (occurrence: US)
  Receive Date: 20210714
  Receipt Date: 20210714
  Transmission Date: 20211014
  Serious: No
  Sender: FDA-Public Use
  Company Number: US-SA-2021SA222200

PATIENT
  Age: 64 Year
  Sex: Female

DRUGS (1)
  1. LANTUS SOLOSTAR [Suspect]
     Active Substance: INSULIN GLARGINE
     Indication: TYPE 2 DIABETES MELLITUS
     Dosage: QD (25?40 UNITS DAILY)
     Route: 065

REACTIONS (4)
  - Product storage error [Unknown]
  - Visual impairment [Unknown]
  - Hyperglycaemia [Unknown]
  - Inappropriate schedule of product administration [Unknown]
